FAERS Safety Report 21859812 (Version 1)
Quarter: 2023Q1

REPORT INFORMATION
  Report Type: Spontaneous
  Country: US (occurrence: None)
  Receive Date: 20230112
  Receipt Date: 20230112
  Transmission Date: 20230417
  Serious: No
  Sender: FDA-Public Use
  Company Number: None

PATIENT
  Age: 76 Year
  Sex: Male

DRUGS (2)
  1. ABIRATERONE [Suspect]
     Active Substance: ABIRATERONE
     Dosage: 1000MG DAILY ORAL
     Route: 048
  2. PROVENGE [Concomitant]
     Active Substance: SIPULEUCEL-T

REACTIONS (9)
  - Influenza like illness [None]
  - Chills [None]
  - Peripheral coldness [None]
  - Chest pain [None]
  - Troponin increased [None]
  - Ejection fraction decreased [None]
  - Hypervolaemia [None]
  - Infusion related reaction [None]
  - Weight increased [None]

NARRATIVE: CASE EVENT DATE: 20230112
